FAERS Safety Report 19938895 (Version 1)
Quarter: 2021Q4

REPORT INFORMATION
  Report Type: Spontaneous
  Country: SG (occurrence: SG)
  Receive Date: 20211011
  Receipt Date: 20211011
  Transmission Date: 20220303
  Serious: Yes (Other)
  Sender: FDA-Public Use
  Company Number: SG-SA-SAC20211007000352

PATIENT
  Age: 54 Year
  Sex: Female

DRUGS (1)
  1. CLOPIDOGREL BISULFATE [Suspect]
     Active Substance: CLOPIDOGREL BISULFATE
     Dosage: UNK
     Route: 065

REACTIONS (2)
  - Anaphylactic shock [Unknown]
  - Angioedema [Unknown]

NARRATIVE: CASE EVENT DATE: 20210807
